FAERS Safety Report 9121885 (Version 1)
Quarter: 2013Q1

REPORT INFORMATION
  Report Type: Spontaneous
  Country: US (occurrence: None)
  Receive Date: 20130125
  Receipt Date: 20130125
  Transmission Date: 20140127
  Serious: No
  Sender: FDA-Public Use
  Company Number: 2012US-004380

PATIENT
  Age: 69 Year
  Sex: Male

DRUGS (9)
  1. OMONTYS (PEGINESATIDE) SOLUTION FOR INJECTION [Suspect]
     Indication: NEPHROGENIC ANAEMIA
     Dosage: 8 MG, Q 4 WEEKS, INTRAVENOUS
     Route: 042
     Dates: start: 20120904, end: 20120904
  2. VITAMIN D3 (COLECALCIFEROL) [Concomitant]
  3. NORVASC (AMLODIPINE BESILATE) [Concomitant]
  4. NEPHROCAPS (ASCORBIC ACID, BIOTIN, CYANOCOBALAMIN, FOLIC ACID, NICOTINAMIDE, PANTOTHENIC ACID, PYRIDOXINE HYDROCHLORIDE, RIBOFLAVIN, THIAMINE HYDROCHLORIDE) [Concomitant]
  5. ASA (ACETYLSALICYLIC ACID) [Concomitant]
  6. COREG (CARVEDILOL) [Concomitant]
  7. ADVAIR (FLUTICASONE PROPIONATE, SALMETEROL XINAFOATE) [Concomitant]
  8. CMOBIVENT (IPRATROPIUM BROMIDE, SALBUTAMOL SULFATE) [Concomitant]
  9. PHOSLO (CALCIUM ACETATE) [Concomitant]

REACTIONS (8)
  - Hypersensitivity [None]
  - Hyperhidrosis [None]
  - Diarrhoea [None]
  - Nausea [None]
  - Vomiting [None]
  - Chills [None]
  - Dyspnoea [None]
  - Blood pressure decreased [None]
